FAERS Safety Report 9813077 (Version 1)
Quarter: 2014Q1

REPORT INFORMATION
  Report Type: Spontaneous
  Country: US (occurrence: US)
  Receive Date: 20140113
  Receipt Date: 20140113
  Transmission Date: 20141002
  Serious: No
  Sender: FDA-Public Use
  Company Number: US-009507513-1401USA001728

PATIENT
  Sex: Female

DRUGS (5)
  1. SINGULAIR [Suspect]
     Indication: ALLERGIC SINUSITIS
     Dosage: 10 MG, QD
     Route: 048
     Dates: start: 2013
  2. SINGULAIR [Suspect]
     Indication: SINUS CONGESTION
  3. CLARITIN [Suspect]
     Indication: SINUS CONGESTION
     Dosage: UNK
     Route: 048
  4. MUCINEX DM [Suspect]
     Indication: SINUS CONGESTION
     Dosage: UNK
  5. Z-PACK [Suspect]
     Indication: SINUS CONGESTION

REACTIONS (1)
  - Drug ineffective [Recovering/Resolving]
